FAERS Safety Report 6296814-6 (Version None)
Quarter: 2009Q3

REPORT INFORMATION
  Report Type: 
  Country: None (occurrence: None)
  Receive Date: 20090804
  Receipt Date: 20090723
  Transmission Date: 20100115
  Serious: Yes (Other)
  Sender: FDA-Public Use
  Company Number: PHHY2009BR30730

PATIENT
  Sex: Female
  Weight: 80 kg

DRUGS (9)
  1. EXELON [Suspect]
     Indication: DEMENTIA
     Dosage: 9 MG/5CM2 (1 PATCH PER DAY)
     Route: 062
     Dates: start: 20090501
  2. EXELON [Suspect]
     Dosage: 18 MG/10 CM2 (1 PATCH PER DAY)
     Route: 062
  3. OXCARBAZEPINE [Concomitant]
     Indication: SYNCOPE
     Dosage: 600 MG, BID
     Route: 048
  4. DEPAKOTE [Concomitant]
     Dosage: 500 MG (4 TABLETS PER DAY)
     Route: 048
  5. RIVOTRIL [Concomitant]
     Indication: DEPRESSION
     Dosage: 2.5 MG, (20 DROPS PER DAY)
     Route: 048
  6. CITALOPRAM [Concomitant]
     Indication: DEPRESSION
     Dosage: 40 MG, (1 TABLET AT NIGHT FOR 15 DAYS)
     Route: 048
  7. RISPERIDONE [Concomitant]
     Indication: DEPRESSION
     Dosage: 1 MG, (1 TABLET AT NIGHT)
     Route: 048
  8. RISPERIDONE [Concomitant]
     Indication: SOMNOLENCE
  9. MEMANTINE HCL [Concomitant]
     Indication: AMNESIA
     Dosage: 10 MG, (2 TABLETS PER DAY) FOR 3 MONTHS
     Route: 048

REACTIONS (4)
  - BEDRIDDEN [None]
  - DYSSTASIA [None]
  - PRURITUS [None]
  - SOMNOLENCE [None]
